FAERS Safety Report 4880080-X (Version None)
Quarter: 2005Q4

REPORT INFORMATION
  Report Type: 
  Country: None (occurrence: None)
  Receive Date: 20051223
  Receipt Date: 20050912
  Transmission Date: 20060501
  Serious: No
  Sender: FDA-Public Use
  Company Number: 05P-163-0310739-00

PATIENT
  Age: 65 Year
  Sex: Female
  Weight: 78.0187 kg

DRUGS (5)
  1. HUMIRA [Suspect]
     Indication: RHEUMATOID ARTHRITIS
     Dosage: 40 MG, 1 IN 2 WK, SUBCUTANEOUS
     Route: 058
     Dates: start: 20040101, end: 20050203
  2. ATENOLOL [Concomitant]
  3. GLIBENCLAMIDE [Concomitant]
  4. ACETYLSALICYLIC ACID SRT [Concomitant]
  5. GLUCOPHAGE [Concomitant]

REACTIONS (1)
  - LUNG NEOPLASM MALIGNANT [None]
